FAERS Safety Report 9584855 (Version 1)
Quarter: 2013Q4

REPORT INFORMATION
  Report Type: Spontaneous
  Country: US (occurrence: US)
  Receive Date: 20131002
  Receipt Date: 20131002
  Transmission Date: 20140711
  Serious: No
  Sender: FDA-Public Use
  Company Number: US-AMGEN-USASP2013055923

PATIENT
  Age: 59 Year
  Sex: Female

DRUGS (7)
  1. ENBREL [Suspect]
     Indication: PRODUCT USED FOR UNKNOWN INDICATION
     Dosage: 50 MG, QWK
     Route: 058
  2. METHOTREXATE [Suspect]
     Indication: PRODUCT USED FOR UNKNOWN INDICATION
     Dosage: 01 G, UNK
     Route: 065
  3. ATORVASTATIN [Concomitant]
     Dosage: 20 MG, UNK
  4. FOLIC ACID [Concomitant]
     Dosage: UNK
  5. ATENOLOL [Concomitant]
     Dosage: 25 MG, UNK
  6. ASA [Concomitant]
     Dosage: 81 MG, UNK
  7. ALEVE [Concomitant]
     Dosage: 220 MG, UNK

REACTIONS (4)
  - Nausea [Recovered/Resolved]
  - Injection site bruising [Unknown]
  - Injection site pain [Unknown]
  - Gastroenteritis viral [Recovered/Resolved]
